FAERS Safety Report 6495367-7 (Version None)
Quarter: 2009Q4

REPORT INFORMATION
  Report Type: 
  Country: None (occurrence: None)
  Receive Date: 20091214
  Receipt Date: 20090610
  Transmission Date: 20100525
  Serious: No
  Sender: FDA-Public Use
  Company Number: US-BRISTOL-MYERS SQUIBB COMPANY-14658132

PATIENT
  Age: 18 Year

DRUGS (3)
  1. ABILIFY [Suspect]
  2. RISPERDAL [Suspect]
  3. LAMICTAL [Suspect]

REACTIONS (1)
  - ABNORMAL SLEEP-RELATED EVENT [None]
